FAERS Safety Report 9169382 (Version 1)
Quarter: 2013Q1

REPORT INFORMATION
  Report Type: Spontaneous
  Country: GB (occurrence: GB)
  Receive Date: 20130318
  Receipt Date: 20130318
  Transmission Date: 20140127
  Serious: Yes (Other)
  Sender: FDA-Public Use
  Company Number: GB-PFIZER INC-2001079329GB

PATIENT
  Age: 63 Year
  Sex: Male
  Weight: 91 kg

DRUGS (3)
  1. CABASER [Suspect]
     Indication: PARKINSON^S DISEASE
     Dosage: 4MG DAILY
     Route: 048
     Dates: start: 200204, end: 200209
  2. SILDENAFIL [Concomitant]
     Dosage: 100 MG, AS NEEDED
     Route: 048
  3. SINEMET [Concomitant]
     Dosage: 62.5MG FIVE TIMES DAILY
     Route: 048

REACTIONS (2)
  - Pleural fibrosis [Unknown]
  - Dyspnoea [Unknown]
